FAERS Safety Report 8041834-4 (Version None)
Quarter: 2012Q1

REPORT INFORMATION
  Report Type: 
  Country: None (occurrence: None)
  Receive Date: 20120112
  Receipt Date: 20120109
  Transmission Date: 20120608
  Serious: Yes (Hospitalization)
  Sender: FDA-Public Use
  Company Number: ZA-SANOFI-AVENTIS-2012SA001595

PATIENT
  Age: 43 Year
  Sex: Male

DRUGS (4)
  1. ATORVASTATIN [Concomitant]
     Route: 048
  2. LANTUS [Suspect]
     Dosage: DOSE:20 UNIT(S)
     Route: 058
     Dates: start: 20111109
  3. ASPIRIN [Concomitant]
     Route: 048
  4. APIDRA [Suspect]
     Dosage: 12-15 UNITS
     Route: 058
     Dates: start: 20111109

REACTIONS (2)
  - MUSCLE SPASMS [None]
  - PAIN [None]
